FAERS Safety Report 7966634-2 (Version None)
Quarter: 2011Q4

REPORT INFORMATION
  Report Type: 
  Country: None (occurrence: None)
  Receive Date: 20111209
  Receipt Date: 20111206
  Transmission Date: 20120403
  Serious: No
  Sender: FDA-Public Use
  Company Number: US-BIOGENIDEC-2010BI030824

PATIENT
  Sex: Female

DRUGS (3)
  1. AVONEX [Concomitant]
     Route: 030
     Dates: start: 20091001
  2. TYSABRI [Suspect]
     Indication: MULTIPLE SCLEROSIS
     Route: 042
     Dates: start: 20091202
  3. AVONEX [Concomitant]
     Indication: MULTIPLE SCLEROSIS
     Route: 030
     Dates: start: 19961001

REACTIONS (9)
  - PAIN IN EXTREMITY [None]
  - COGNITIVE DISORDER [None]
  - GAIT DISTURBANCE [None]
  - VISUAL IMPAIRMENT [None]
  - MULTIPLE SCLEROSIS [None]
  - HYPOAESTHESIA [None]
  - DRUG INEFFECTIVE [None]
  - MUSCLE SPASMS [None]
  - STRESS [None]
